FAERS Safety Report 8988803 (Version 1)
Quarter: 2012Q4

REPORT INFORMATION
  Report Type: 
  Country: CN (occurrence: CN)
  Receive Date: 20121228
  Receipt Date: 20121228
  Transmission Date: 20130627
  Serious: Yes (Hospitalization)
  Sender: FDA-Public Use
  Company Number: CN-SANOFI-AVENTIS-2012SA093088

PATIENT
  Age: 69 Year
  Sex: Female
  Weight: 60 kg

DRUGS (5)
  1. LANTUS SOLOSTAR [Suspect]
     Indication: DIABETES MELLITUS
     Dosage: Dose:12 unit(s)
     Route: 058
     Dates: start: 2011
  2. LANTUS SOLOSTAR [Suspect]
     Indication: DIABETES MELLITUS
     Dosage: Dose:16 unit(s)
     Route: 058
     Dates: start: 201205
  3. LANTUS SOLOSTAR [Suspect]
     Indication: DIABETES MELLITUS
     Dosage: Dose:20 unit(s)
     Route: 058
     Dates: start: 201212
  4. SOLOSTAR [Suspect]
     Indication: DEVICE THERAPY
     Dates: start: 2011
  5. HUMULIN [Concomitant]
     Indication: DIABETES MELLITUS
     Dosage: 9-10 U/d pre-meal
     Route: 058

REACTIONS (1)
  - Cardiac failure [Not Recovered/Not Resolved]
